FAERS Safety Report 23873133 (Version 1)
Quarter: 2024Q2

REPORT INFORMATION
  Report Type: Spontaneous
  Country: US (occurrence: US)
  Receive Date: 20240520
  Receipt Date: 20240520
  Transmission Date: 20240716
  Serious: Yes (Other)
  Sender: FDA-Public Use
  Company Number: US-AUROBINDO-AUR-APL-2024-023613

PATIENT
  Sex: Female

DRUGS (13)
  1. AZACITIDINE [Suspect]
     Active Substance: AZACITIDINE
     Indication: Acute myeloid leukaemia
     Dosage: 75 MILLIGRAM/SQ. METER, DAILY, ONCE DAILY ON DAYS 1-7
     Route: 065
  2. AZACITIDINE [Suspect]
     Active Substance: AZACITIDINE
     Indication: Prophylaxis
     Dosage: 75 MILLIGRAM/SQ. METER, DAILY, AN ADDITIONAL 14 DAYS CYCLE, ONCE DAILY ON DAYS 1-7
     Route: 065
  3. VENETOCLAX [Suspect]
     Active Substance: VENETOCLAX
     Indication: Acute myeloid leukaemia
     Dosage: 10 MILLIGRAM, ONCE A DAY, ON DAY 1
     Route: 065
  4. VENETOCLAX [Suspect]
     Active Substance: VENETOCLAX
     Indication: Prophylaxis
     Dosage: 20 MILLIGRAM, ONCE A DAY, ON DAY 2
     Route: 065
  5. VENETOCLAX [Suspect]
     Active Substance: VENETOCLAX
     Dosage: 50 MILLIGRAM, ONCE A DAY, ON DAY 3
     Route: 065
  6. VENETOCLAX [Suspect]
     Active Substance: VENETOCLAX
     Dosage: 70 MILLIGRAM, ONCE A DAY, ON DAYS 4-21 OF 21 DAYS CYCLE
     Route: 065
  7. VENETOCLAX [Suspect]
     Active Substance: VENETOCLAX
     Dosage: 10 MILLIGRAM, ONCE A DAY, ON DAY 1, ON DAYS 4-14
     Route: 065
  8. VENETOCLAX [Suspect]
     Active Substance: VENETOCLAX
     Dosage: 20 MILLIGRAM, ONCE A DAY, ON DAY 2,ON DAYS 4-14
     Route: 065
  9. VENETOCLAX [Suspect]
     Active Substance: VENETOCLAX
     Dosage: 50 MILLIGRAM, ONCE A DAY, ON DAY 3, ON DAYS 4-14
     Route: 065
  10. VENETOCLAX [Suspect]
     Active Substance: VENETOCLAX
     Dosage: 70 MILLIGRAM, ONCE A DAY, ON DAYS ON DAYS 4-14
     Route: 065
  11. CYCLOPHOSPHAMIDE [Concomitant]
     Active Substance: CYCLOPHOSPHAMIDE
     Indication: Product used for unknown indication
     Dosage: UNK, LOW DOSE
     Route: 065
  12. FLUDARABINE [Concomitant]
     Active Substance: FLUDARABINE PHOSPHATE
     Indication: Product used for unknown indication
     Dosage: UNK, LOW DOSE
     Route: 065
  13. BUSULFAN [Concomitant]
     Active Substance: BUSULFAN
     Indication: Product used for unknown indication
     Dosage: UNK, LOW DOSE
     Route: 065

REACTIONS (1)
  - Myelosuppression [Recovered/Resolved]
